FAERS Safety Report 5973646-7 (Version None)
Quarter: 2008Q4

REPORT INFORMATION
  Report Type: 
  Country: None (occurrence: None)
  Receive Date: 20081201
  Receipt Date: 20081117
  Transmission Date: 20090506
  Serious: Yes (Hospitalization)
  Sender: FDA-Public Use
  Company Number: JP-SANOFI-SYNTHELABO-A01200815253

PATIENT
  Sex: Male
  Weight: 57.5 kg

DRUGS (19)
  1. BIKEN [Concomitant]
     Indication: PROPHYLAXIS
     Route: 058
     Dates: start: 20071029, end: 20071029
  2. HOCHUU EKKITOU EXTRACT [Concomitant]
     Indication: ANOREXIA
     Route: 048
     Dates: start: 20071015, end: 20071210
  3. MOHRUS [Concomitant]
     Indication: CEREBRAL INFARCTION
     Route: 003
     Dates: start: 20070704
  4. IDOMETHINE [Concomitant]
     Indication: CEREBRAL INFARCTION
     Route: 003
     Dates: start: 20070704
  5. TAKEPRON [Concomitant]
     Indication: GASTRITIS PROPHYLAXIS
     Route: 048
     Dates: start: 20070704, end: 20070728
  6. MAGLAX [Concomitant]
     Indication: CONSTIPATION
     Route: 048
     Dates: start: 20070704
  7. HYDANTOL [Concomitant]
     Indication: EPILEPSY
     Dosage: UNK
     Route: 048
     Dates: start: 20070704
  8. DEPAKENE [Concomitant]
     Indication: EPILEPSY
     Route: 048
     Dates: start: 20070704
  9. NU-LOTAN [Concomitant]
     Indication: HYPERTENSION
     Route: 048
     Dates: start: 20070704
  10. NORVASC [Concomitant]
     Indication: HYPERTENSION
     Route: 048
     Dates: start: 20070704
  11. TOLTERODINE TARTRATE [Suspect]
     Indication: CEREBRAL INFARCTION
     Route: 048
     Dates: start: 20070704, end: 20071125
  12. ZOLOFT [Suspect]
     Indication: CEREBRAL INFARCTION
     Route: 048
     Dates: start: 20070704, end: 20071111
  13. ZOLOFT [Suspect]
     Route: 048
     Dates: start: 20071112, end: 20071126
  14. INVESTIGATIONAL DRUG (CLOPIDOGREL) [Suspect]
     Indication: CEREBRAL INFARCTION
     Dosage: BLIND: 50 MG OR 75 MG DAILY
     Route: 048
     Dates: start: 20070820, end: 20080817
  15. PLAVIX [Suspect]
     Indication: CEREBRAL INFARCTION
     Route: 048
     Dates: start: 20080818
  16. TEGRETOL [Suspect]
     Indication: EPILEPSY
     Route: 048
     Dates: start: 20070918, end: 20071111
  17. TEGRETOL [Suspect]
     Indication: ANOREXIA
     Route: 048
     Dates: start: 20070918, end: 20071111
  18. TEGRETOL [Suspect]
     Route: 048
     Dates: start: 20071112, end: 20071126
  19. TEGRETOL [Suspect]
     Route: 048
     Dates: start: 20071112, end: 20071126

REACTIONS (1)
  - RENAL FAILURE CHRONIC [None]
